FAERS Safety Report 8127000-2 (Version None)
Quarter: 2012Q1

REPORT INFORMATION
  Report Type: 
  Country: None (occurrence: None)
  Receive Date: 20120210
  Receipt Date: 20120209
  Transmission Date: 20120608
  Serious: Yes (Other)
  Sender: FDA-Public Use
  Company Number: US-BAYER-2012-013166

PATIENT
  Sex: Female

DRUGS (2)
  1. BETASERON [Suspect]
     Indication: PRODUCT USED FOR UNKNOWN INDICATION
     Dosage: 0.25 MG, QOD
  2. FLUOXETINE [Concomitant]
     Dosage: 10 MG, UNK

REACTIONS (3)
  - CRYING [None]
  - DEPRESSION [None]
  - GASTROENTERITIS VIRAL [None]
